FAERS Safety Report 23612458 (Version 5)
Quarter: 2025Q2

REPORT INFORMATION
  Report Type: Report from Study
  Country: CO (occurrence: CO)
  Receive Date: 20240308
  Receipt Date: 20250403
  Transmission Date: 20250717
  Serious: Yes (Hospitalization, Other)
  Sender: CHIESI
  Company Number: CO-AMRYT PHARMACEUTICALS DAC-AEGR006962

PATIENT
  Sex: Female

DRUGS (4)
  1. METRELEPTIN [Suspect]
     Active Substance: METRELEPTIN
     Indication: Congenital generalised lipodystrophy
     Route: 058
     Dates: start: 20230710, end: 20240224
  2. METRELEPTIN [Suspect]
     Active Substance: METRELEPTIN
     Route: 058
     Dates: start: 20230710, end: 20240415
  3. METRELEPTIN [Suspect]
     Active Substance: METRELEPTIN
     Dates: start: 20230710, end: 20240604
  4. METRELEPTIN [Suspect]
     Active Substance: METRELEPTIN
     Route: 048
     Dates: start: 20230710, end: 20240624

REACTIONS (12)
  - Post procedural haemorrhage [Unknown]
  - Abdominal distension [Unknown]
  - Tonic clonic movements [Unknown]
  - Loss of consciousness [Unknown]
  - Somnolence [Unknown]
  - Decreased appetite [Unknown]
  - Vomiting [Unknown]
  - Weight decreased [Unknown]
  - Fatigue [Unknown]
  - Ascites [Unknown]
  - Tracheostomy [Unknown]
  - Therapy interrupted [Unknown]
